FAERS Safety Report 5936772-4 (Version None)
Quarter: 2008Q4

REPORT INFORMATION
  Report Type: 
  Country: None (occurrence: None)
  Receive Date: 20081029
  Receipt Date: 20071009
  Transmission Date: 20090506
  Serious: Yes (Other)
  Sender: FDA-Public Use
  Company Number: 2007US002424

PATIENT
  Sex: Male
  Weight: 54.4316 kg

DRUGS (3)
  1. VAPRISOL [Suspect]
     Indication: HYPONATRAEMIA
     Dosage: 200 MG, IV BOLUS; 20 MG, UID/QD, IV NOS
  2. PROGRAF [Suspect]
     Indication: HEART TRANSPLANT
  3. IMMUNE GLOBULIN (HUMAN) [Concomitant]

REACTIONS (5)
  - BLOOD SODIUM DECREASED [None]
  - HYPONATRAEMIA [None]
  - NAUSEA [None]
  - TREMOR [None]
  - URINE OSMOLARITY INCREASED [None]
